FAERS Safety Report 5660968-2 (Version None)
Quarter: 2008Q1

REPORT INFORMATION
  Report Type: 
  Country: None (occurrence: None)
  Receive Date: 20080311
  Receipt Date: 20080303
  Transmission Date: 20080703
  Serious: Yes (Other)
  Sender: FDA-Public Use
  Company Number: US-PFIZER INC-2007077169

PATIENT
  Sex: Female
  Weight: 74 kg

DRUGS (15)
  1. GENOTROPIN [Suspect]
     Indication: HYPOPITUITARISM
     Route: 058
  2. ZANAFLEX [Concomitant]
  3. PLAVIX [Concomitant]
     Indication: PANIC DISORDER
     Route: 048
  4. PROZAC [Concomitant]
     Indication: PANIC DISORDER
     Route: 048
  5. LOVASTATIN [Concomitant]
     Indication: FLUID RETENTION
     Route: 048
  6. XANAX [Concomitant]
     Indication: PANIC DISORDER
     Route: 048
  7. HYDROCHLOROTHIAZIDE [Concomitant]
     Indication: FLUID RETENTION
     Route: 048
  8. SYNTHROID [Concomitant]
     Indication: THYROID DISORDER
     Route: 048
  9. METOPROLOL TARTRATE [Concomitant]
     Indication: HYPERTENSION
     Route: 048
  10. VALSARTAN [Concomitant]
     Route: 048
  11. AMLODIPINE [Concomitant]
     Route: 048
  12. ZETIA [Concomitant]
     Route: 048
  13. TRICOR [Concomitant]
     Route: 048
  14. PRILOSEC [Concomitant]
     Route: 048
  15. ASPIRIN [Concomitant]
     Route: 048

REACTIONS (1)
  - MYOCARDIAL INFARCTION [None]
